FAERS Safety Report 4273787-9 (Version None)
Quarter: 2004Q1

REPORT INFORMATION
  Report Type: 
  Country: None (occurrence: None)
  Receive Date: 20040119
  Receipt Date: 20040113
  Transmission Date: 20041129
  Serious: Yes (Hospitalization)
  Sender: FDA-Public Use
  Company Number: WAES 0401USA01011

PATIENT
  Age: 52 Year
  Sex: Female

DRUGS (9)
  1. ESTROGENS (UNSPECIFIED) [Concomitant]
  2. HYDRODIURIL [Suspect]
     Route: 048
  3. LACTULOSE [Concomitant]
  4. METHADONE HYDROCHLORIDE [Suspect]
     Indication: BACK PAIN
     Route: 048
  5. METHADONE HYDROCHLORIDE [Suspect]
     Route: 048
  6. MORPHINE [Concomitant]
     Route: 048
  7. PROGESTERONE [Concomitant]
  8. RANITIDINE [Concomitant]
  9. TRIMIPRAMINE [Suspect]

REACTIONS (9)
  - DRUG INTERACTION [None]
  - EJECTION FRACTION DECREASED [None]
  - ELECTROCARDIOGRAM ST-T CHANGE [None]
  - FAECAL INCONTINENCE [None]
  - HYPOKALAEMIA [None]
  - HYPOMAGNESAEMIA [None]
  - SYNCOPE [None]
  - TORSADE DE POINTES [None]
  - VENTRICULAR TACHYCARDIA [None]
